FAERS Safety Report 4312842-1 (Version None)
Quarter: 2004Q1

REPORT INFORMATION
  Report Type: 
  Country: None (occurrence: None)
  Receive Date: 20040304
  Receipt Date: 20040227
  Transmission Date: 20041129
  Serious: Yes (Death, Other)
  Sender: FDA-Public Use
  Company Number: 2004196187DE

PATIENT
  Age: 68 Year
  Sex: Male

DRUGS (5)
  1. CAMPTOSAR [Suspect]
     Indication: COLON CANCER
     Dosage: 177MG, CYCLIC, IV
     Route: 042
     Dates: start: 20031229, end: 20040105
  2. CALCIUM FOLINATE (CALCIUM FOLINATE) [Suspect]
     Indication: COLON CANCER METASTATIC
     Dosage: 1110 MG, CYCLIC, IV
     Route: 042
     Dates: start: 20031229, end: 20040105
  3. FLUOROURACIL [Suspect]
     Indication: COLON CANCER METASTATIC
     Dosage: 4430 MG, CYCLIC, IV
     Route: 042
     Dates: start: 20031229, end: 20040105
  4. NAVOBAN (TROPISETRON HYDROCHLORIDE) [Concomitant]
  5. ATROPINE [Concomitant]

REACTIONS (7)
  - DIARRHOEA [None]
  - MALIGNANT NEOPLASM PROGRESSION [None]
  - METASTASES TO LIVER [None]
  - METASTASES TO LUNG [None]
  - MUCOSAL INFLAMMATION [None]
  - MULTI-ORGAN FAILURE [None]
  - PANCYTOPENIA [None]
